FAERS Safety Report 4927444-3 (Version None)
Quarter: 2006Q1

REPORT INFORMATION
  Report Type: 
  Country: None (occurrence: None)
  Receive Date: 20060228
  Receipt Date: 20060223
  Transmission Date: 20060701
  Serious: Yes (Death)
  Sender: FDA-Public Use
  Company Number: US-JNJFOC-20060205548

PATIENT
  Sex: Female
  Weight: 72.58 kg

DRUGS (8)
  1. INFLIXIMAB [Suspect]
     Indication: RHEUMATOID ARTHRITIS
     Route: 042
  2. CALCIUM GLUCONATE [Concomitant]
  3. FOLIC ACID [Concomitant]
  4. PLAVIX [Concomitant]
  5. TOPROL [Concomitant]
  6. VISTARIL [Concomitant]
  7. ZYRTEC [Concomitant]
  8. ZINC [Concomitant]

REACTIONS (1)
  - CORONARY ARTERY DISEASE [None]
